FAERS Safety Report 8267111-4 (Version None)
Quarter: 2012Q2

REPORT INFORMATION
  Report Type: 
  Country: None (occurrence: None)
  Receive Date: 20120409
  Receipt Date: 20120402
  Transmission Date: 20120825
  Serious: Yes (Other)
  Sender: FDA-Public Use
  Company Number: GR-AMGEN-GRCSP2012021030

PATIENT
  Weight: 40 kg

DRUGS (1)
  1. NEULASTA [Suspect]
     Indication: CHEMOTHERAPY
     Dosage: 6 MG, PER CHEMO REGIM

REACTIONS (5)
  - FEBRILE NEUTROPENIA [None]
  - THROMBOCYTOPENIA [None]
  - BONE PAIN [None]
  - NEUTROPENIA [None]
  - ANAEMIA [None]
